FAERS Safety Report 19199710 (Version 1)
Quarter: 2021Q2

REPORT INFORMATION
  Report Type: Spontaneous
  Country: US (occurrence: US)
  Receive Date: 20210429
  Receipt Date: 20210429
  Transmission Date: 20210717
  Serious: No
  Sender: FDA-Public Use
  Company Number: None

PATIENT
  Age: 62 Year
  Sex: Female
  Weight: 71.1 kg

DRUGS (1)
  1. ZOLEDRONIC ACID INJECTION 5 MG PER 100 ML [Suspect]
     Active Substance: ZOLEDRONIC ACID
     Indication: OSTEOPOROSIS
     Dosage: ?          OTHER FREQUENCY:ONCE YEARLY;?
     Route: 042
     Dates: start: 20210421, end: 20210421

REACTIONS (4)
  - Ocular hyperaemia [None]
  - Iridocyclitis [None]
  - Ocular discomfort [None]
  - Eye pain [None]

NARRATIVE: CASE EVENT DATE: 20210425
